FAERS Safety Report 8739472 (Version 3)
Quarter: 2012Q4

REPORT INFORMATION
  Report Type: 
  Country: US (occurrence: US)
  Receive Date: 20120823
  Receipt Date: 20121011
  Transmission Date: 20130627
  Serious: Yes (Hospitalization, Other)
  Sender: FDA-Public Use
  Company Number: US-PFIZER INC-2012204369

PATIENT
  Sex: Female

DRUGS (1)
  1. ZOLOFT [Suspect]
     Indication: DEPRESSION
     Dosage: 25 mg, 2x/day
     Dates: start: 201201, end: 20120704

REACTIONS (33)
  - Suicidal ideation [Recovering/Resolving]
  - Depression [Recovering/Resolving]
  - Paranoia [Recovering/Resolving]
  - Swollen tongue [Recovering/Resolving]
  - Throat tightness [Recovering/Resolving]
  - Oedema mouth [Recovering/Resolving]
  - Lip swelling [Recovering/Resolving]
  - Swelling face [Recovering/Resolving]
  - Blister [Recovering/Resolving]
  - Skin exfoliation [Recovering/Resolving]
  - Alopecia [Not Recovered/Not Resolved]
  - Heart rate irregular [Recovering/Resolving]
  - Dyspnoea [Recovering/Resolving]
  - Chest discomfort [Recovering/Resolving]
  - Erythema [Recovering/Resolving]
  - Weight decreased [Recovering/Resolving]
  - Insomnia [Recovering/Resolving]
  - Dizziness [Recovering/Resolving]
  - Confusional state [Recovering/Resolving]
  - Hypoaesthesia [Recovering/Resolving]
  - Paraesthesia [Recovering/Resolving]
  - Anxiety [Recovering/Resolving]
  - Dry mouth [Recovering/Resolving]
  - Hyperhidrosis [Recovering/Resolving]
  - Skin burning sensation [Recovering/Resolving]
  - Muscle rigidity [Recovering/Resolving]
  - Muscle twitching [Recovering/Resolving]
  - Hyperreflexia [Recovering/Resolving]
  - Panic attack [Recovering/Resolving]
  - Tinnitus [Recovering/Resolving]
  - Visual impairment [Recovering/Resolving]
  - Nightmare [Recovering/Resolving]
  - Thinking abnormal [Recovering/Resolving]
